FAERS Safety Report 9860132 (Version 3)
Quarter: 2015Q3

REPORT INFORMATION
  Report Type: Report from Study
  Country: US (occurrence: US)
  Receive Date: 20140201
  Receipt Date: 20150916
  Transmission Date: 20151125
  Serious: Yes (Death)
  Sender: FDA-Public Use
  Company Number: US-ROCHE-1342875

PATIENT
  Age: 95 Year
  Sex: Female

DRUGS (1)
  1. LUCENTIS [Suspect]
     Active Substance: RANIBIZUMAB
     Indication: NEOVASCULAR AGE-RELATED MACULAR DEGENERATION
     Dosage: DATE OF THE LAST INJECTION:JAN/2013
     Route: 065
     Dates: end: 201301

REACTIONS (1)
  - Death [Fatal]

NARRATIVE: CASE EVENT DATE: 20140105
